FAERS Safety Report 10581127 (Version 1)
Quarter: 2014Q4

REPORT INFORMATION
  Report Type: Spontaneous
  Country: US (occurrence: None)
  Receive Date: 20141112
  Receipt Date: 20141112
  Transmission Date: 20150529
  Serious: Yes (Disabling)
  Sender: FDA-Public Use
  Company Number: None

PATIENT
  Age: 57 Year
  Sex: Female
  Weight: 83.01 kg

DRUGS (1)
  1. LEVOFLOXACIN. [Suspect]
     Active Substance: LEVOFLOXACIN
     Indication: SINUSITIS
     Dosage: 1 TABLET ONCE DAILY TAKEN BY MOUTH
     Route: 048
     Dates: start: 20131118, end: 20131121

REACTIONS (13)
  - Memory impairment [None]
  - Disturbance in attention [None]
  - Tendon pain [None]
  - Influenza like illness [None]
  - Dyspnoea [None]
  - Insomnia [None]
  - Joint lock [None]
  - Tinnitus [None]
  - Palpitations [None]
  - Anger [None]
  - Activities of daily living impaired [None]
  - Pain [None]
  - Pain in extremity [None]

NARRATIVE: CASE EVENT DATE: 20131118
